FAERS Safety Report 4748888-9 (Version None)
Quarter: 2005Q3

REPORT INFORMATION
  Report Type: 
  Country: None (occurrence: None)
  Receive Date: 20050817
  Receipt Date: 20050808
  Transmission Date: 20060218
  Serious: Yes (Hospitalization)
  Sender: FDA-Public Use
  Company Number: EM2005-0299

PATIENT

DRUGS (6)
  1. PROLEUKIN [Suspect]
     Indication: RENAL CELL CARCINOMA STAGE UNSPECIFIED
  2. INTERFERON ALFA (INTERFERON ALFA) [Suspect]
     Indication: RENAL CELL CARCINOMA STAGE UNSPECIFIED
  3. FLUOROURACIL [Suspect]
     Indication: RENAL CELL CARCINOMA STAGE UNSPECIFIED
  4. DICLOFENAC (DICLOFENAC) [Concomitant]
  5. METOCLOPRAMIDE [Concomitant]
  6. CYCLIZINE (CYCLIZINE) [Concomitant]

REACTIONS (3)
  - ATRIAL FIBRILLATION [None]
  - HYPERTHYROIDISM [None]
  - MALAISE [None]
